FAERS Safety Report 5473922-0 (Version None)
Quarter: 2007Q4

REPORT INFORMATION
  Report Type: 
  Country: None (occurrence: None)
  Receive Date: 20071001
  Receipt Date: 20070924
  Transmission Date: 20080405
  Serious: Yes (Disabling)
  Sender: FDA-Public Use
  Company Number: DE-PFIZER INC-2007079883

PATIENT
  Sex: Female

DRUGS (1)
  1. AROMASIN [Suspect]
     Route: 048

REACTIONS (1)
  - SKIN ULCER [None]
